FAERS Safety Report 20516863 (Version 1)
Quarter: 2022Q1

REPORT INFORMATION
  Report Type: Spontaneous
  Country: IN (occurrence: IN)
  Receive Date: 20220225
  Receipt Date: 20220225
  Transmission Date: 20220424
  Serious: Yes (Death, Hospitalization, Other)
  Sender: FDA-Public Use
  Company Number: IN-SNT-000223

PATIENT
  Sex: Male

DRUGS (2)
  1. POSACONAZOLE [Suspect]
     Active Substance: POSACONAZOLE
     Indication: Product use in unapproved indication
     Route: 065
  2. AMPHOTERICIN B [Suspect]
     Active Substance: AMPHOTERICIN B
     Indication: Mucormycosis
     Route: 065

REACTIONS (7)
  - Cardiac arrest [Fatal]
  - Septic shock [Unknown]
  - General physical health deterioration [Unknown]
  - Acute kidney injury [Unknown]
  - Liver function test decreased [Unknown]
  - Product use issue [Unknown]
  - Skin exfoliation [Unknown]
